FAERS Safety Report 4604126-9 (Version None)
Quarter: 2005Q1

REPORT INFORMATION
  Report Type: 
  Country: None (occurrence: None)
  Receive Date: 20050309
  Receipt Date: 20050309
  Transmission Date: 20050727
  Serious: Yes (Hospitalization, Other)
  Sender: FDA-Public Use
  Company Number: None

PATIENT
  Age: 81 Year
  Sex: Male
  Weight: 63.5 kg

DRUGS (9)
  1. CLOPIDOGREL BISULFATE [Suspect]
     Indication: ANTIPLATELET THERAPY
     Dosage: 75 MG PO DAILY [CHRONIC]
     Route: 048
  2. PLAVIX [Concomitant]
  3. TOPROL-XL [Concomitant]
  4. NEURONTIN [Concomitant]
  5. ZYPREXA [Concomitant]
  6. EXELON [Concomitant]
  7. CARBIDOPA AND LEVODOPA [Concomitant]
  8. COLACE [Concomitant]
  9. FLORINEF [Concomitant]

REACTIONS (3)
  - BLOODY DISCHARGE [None]
  - FALL [None]
  - HAEMOTHORAX [None]
